FAERS Safety Report 10886062 (Version 1)
Quarter: 2015Q1

REPORT INFORMATION
  Report Type: Spontaneous
  Country: US (occurrence: None)
  Receive Date: 20150302
  Receipt Date: 20150302
  Transmission Date: 20150721
  Serious: Yes (Other)
  Sender: FDA-Public Use
  Company Number: 2015JUB00049

PATIENT
  Age: 58 Year
  Sex: Female
  Weight: 64.4 kg

DRUGS (1)
  1. LAMOTRIGINE  TABLETS 150MG (LAMOTRIGINE) TABLET [Suspect]
     Active Substance: LAMOTRIGINE
     Indication: SEIZURE
     Route: 048
     Dates: start: 2014

REACTIONS (5)
  - Seizure [None]
  - Prescribed overdose [None]
  - Dizziness [None]
  - Drug ineffective [None]
  - Impaired driving ability [None]

NARRATIVE: CASE EVENT DATE: 2014
